FAERS Safety Report 10653197 (Version 2)
Quarter: 2015Q1

REPORT INFORMATION
  Report Type: Spontaneous
  Country: DE (occurrence: DE)
  Receive Date: 20141215
  Receipt Date: 20150113
  Transmission Date: 20150720
  Serious: Yes (Other)
  Sender: FDA-Public Use
  Company Number: DE-GLAXOSMITHKLINE-DE2014GSK034613

PATIENT
  Sex: Female

DRUGS (2)
  1. TAFINLAR [Suspect]
     Active Substance: DABRAFENIB MESYLATE
     Indication: PRODUCT USED FOR UNKNOWN INDICATION
     Dosage: 150 MG, BID
     Dates: start: 20141110
  2. GRANISETRON [Concomitant]
     Active Substance: GRANISETRON
     Dosage: 2 MG, UNK

REACTIONS (1)
  - Mycobacterium tuberculosis complex test positive [Unknown]
